FAERS Safety Report 26070230 (Version 2)
Quarter: 2025Q4

REPORT INFORMATION
  Report Type: Report from Study
  Country: JP (occurrence: JP)
  Receive Date: 20251120
  Receipt Date: 20251202
  Transmission Date: 20260117
  Serious: Yes (Death, Life-Threatening, Hospitalization, Other)
  Sender: PFIZER
  Company Number: JP-PFIZER INC-PV202500132355

PATIENT
  Age: 79 Year
  Sex: Male
  Weight: 52.6 kg

DRUGS (26)
  1. ATGAM [Suspect]
     Active Substance: EQUINE THYMOCYTE IMMUNE GLOBULIN
     Indication: Aplastic anaemia
     Dosage: 2000 MG, DAILY
     Dates: start: 20240430, end: 20240501
  2. ATGAM [Suspect]
     Active Substance: EQUINE THYMOCYTE IMMUNE GLOBULIN
     Dosage: 2000 MG, DAILY
     Dates: start: 20240501, end: 20240502
  3. ATGAM [Suspect]
     Active Substance: EQUINE THYMOCYTE IMMUNE GLOBULIN
     Dosage: 2000 MG, DAILY
     Dates: start: 20240502, end: 20240503
  4. ATGAM [Suspect]
     Active Substance: EQUINE THYMOCYTE IMMUNE GLOBULIN
     Dosage: 2000 MG, DAILY
     Dates: start: 20240503, end: 20240504
  5. NEORAL [Concomitant]
     Active Substance: CYCLOSPORINE
     Indication: Aplastic anaemia
     Dosage: 240 MG, DAILY
     Route: 048
     Dates: start: 20240430, end: 20250326
  6. ELTROMBOPAG OLAMINE [Concomitant]
     Active Substance: ELTROMBOPAG OLAMINE
     Indication: Aplastic anaemia
     Dosage: UNK
     Route: 048
     Dates: start: 20240508, end: 20240527
  7. ELTROMBOPAG OLAMINE [Concomitant]
     Active Substance: ELTROMBOPAG OLAMINE
     Dosage: UNK
     Route: 048
     Dates: start: 20240604, end: 20240704
  8. ROMIPLOSTIM [Concomitant]
     Active Substance: ROMIPLOSTIM
     Indication: Aplastic anaemia
     Dosage: UNK
     Dates: start: 20240712, end: 20250303
  9. LANSOPRAZOLE [Concomitant]
     Active Substance: LANSOPRAZOLE
     Indication: Prophylaxis against gastrointestinal ulcer
     Dosage: UNK
     Route: 048
     Dates: start: 20240424, end: 20250315
  10. CARDENALIN [Concomitant]
     Active Substance: DOXAZOSIN MESYLATE
     Indication: Hypertension
     Dosage: UNK
     Route: 048
     Dates: start: 20240424, end: 20240501
  11. FEBUXOSTAT [Concomitant]
     Active Substance: FEBUXOSTAT
     Indication: Hyperuricaemia
     Dosage: UNK
     Route: 048
     Dates: start: 20240424, end: 20240510
  12. EPLERENONE [Concomitant]
     Active Substance: EPLERENONE
     Indication: Hypertension
     Dosage: UNK
     Route: 048
     Dates: start: 20240424, end: 20250501
  13. JANUVIA [Concomitant]
     Active Substance: SITAGLIPTIN PHOSPHATE
     Indication: Diabetes mellitus
     Dosage: UNK
     Route: 048
     Dates: start: 20240424
  14. ADALAT [Concomitant]
     Active Substance: NIFEDIPINE
     Indication: Hypertension
     Dosage: UNK
     Route: 048
     Dates: start: 20240424
  15. ITRACONAZOLE [Concomitant]
     Active Substance: ITRACONAZOLE
     Indication: Infection prophylaxis
     Dosage: UNK
     Route: 048
     Dates: start: 20240424
  16. BILASTINE [Concomitant]
     Active Substance: BILASTINE
     Indication: Pruritus
     Dosage: UNK
     Route: 048
     Dates: start: 20240425, end: 20240430
  17. CALONAL [Concomitant]
     Active Substance: ACETAMINOPHEN
     Indication: Pyrexia
     Dosage: UNK, AS NEEDED FOR PYREXIA
     Route: 048
     Dates: start: 20240423
  18. SENNA LEAF [Concomitant]
     Active Substance: SENNA LEAF
     Indication: Constipation
     Dosage: UNK
     Route: 048
     Dates: start: 20240424
  19. MAGNESIUM OXIDE [Concomitant]
     Active Substance: MAGNESIUM OXIDE
     Indication: Constipation
     Dosage: UNK
     Route: 048
     Dates: start: 20240425
  20. DAYVIGO [Concomitant]
     Active Substance: LEMBOREXANT
     Indication: Insomnia
     Dosage: UNK
     Route: 048
     Dates: start: 20240427
  21. PREDNISOLONE [Concomitant]
     Active Substance: PREDNISOLONE
     Indication: Prophylaxis
     Dosage: UNK
     Dates: start: 20240504
  22. DESYREL [Concomitant]
     Active Substance: TRAZODONE HYDROCHLORIDE
     Indication: Insomnia
     Dosage: UNK
     Route: 048
     Dates: start: 20240428, end: 20240430
  23. RAMELTEON [Concomitant]
     Active Substance: RAMELTEON
     Indication: Insomnia
     Dosage: UNK
     Route: 048
     Dates: start: 20240428, end: 20240527
  24. RISPERIDONE [Concomitant]
     Active Substance: RISPERIDONE
     Indication: Delirium
     Dosage: UNK
     Route: 048
     Dates: start: 20240502
  25. HERBALS [Concomitant]
     Active Substance: HERBALS
     Indication: Delirium
     Dosage: UNK
     Dates: start: 20240501
  26. ZOVIRAX [Concomitant]
     Active Substance: ACYCLOVIR
     Indication: Herpes zoster
     Dosage: UNK

REACTIONS (8)
  - Cerebral infarction [Fatal]
  - Shoshin beriberi [Recovered/Resolved]
  - Altered state of consciousness [Recovering/Resolving]
  - Posterior reversible encephalopathy syndrome [Recovering/Resolving]
  - Febrile neutropenia [Recovered/Resolved]
  - Hypertensive encephalopathy [Recovering/Resolving]
  - Thalamic infarction [Recovering/Resolving]
  - Cardiac failure acute [Recovered/Resolved]

NARRATIVE: CASE EVENT DATE: 20240423
